FAERS Safety Report 6837244-5 (Version None)
Quarter: 2010Q3

REPORT INFORMATION
  Report Type: 
  Country: None (occurrence: None)
  Receive Date: 20100713
  Receipt Date: 20070509
  Transmission Date: 20110219
  Serious: No
  Sender: FDA-Public Use
  Company Number: US-PFIZER INC-2007038089

PATIENT
  Age: 35 Year
  Sex: Female
  Weight: 68.181 kg

DRUGS (3)
  1. CHANTIX [Suspect]
     Indication: SMOKING CESSATION THERAPY
     Dates: start: 20070504
  2. KLONOPIN [Concomitant]
  3. CYMBALTA [Concomitant]

REACTIONS (4)
  - ASTHENIA [None]
  - DYSGRAPHIA [None]
  - MENSTRUATION DELAYED [None]
  - MIGRAINE [None]
